FAERS Safety Report 9257628 (Version 1)
Quarter: 2013Q2

REPORT INFORMATION
  Report Type: Report from Study
  Country: NL (occurrence: NL)
  Receive Date: 20130426
  Receipt Date: 20130426
  Transmission Date: 20140414
  Serious: Yes (Hospitalization)
  Sender: FDA-Public Use
  Company Number: NL-MPIJNJ-2013-02516

PATIENT
  Sex: 0

DRUGS (9)
  1. VELCADE [Suspect]
     Indication: PLASMA CELL MYELOMA
     Dosage: 1.3 MG/M2, UNK
     Route: 058
     Dates: start: 20130315, end: 20130325
  2. VELCADE [Suspect]
     Dosage: 1.3 MG/M2, MONTHLY
     Route: 065
  3. CYCLOPHOSPHAMIDE [Suspect]
     Indication: PLASMA CELL MYELOMA
     Dosage: 500 MG/M2, UNK
     Route: 042
     Dates: start: 20130315, end: 20130322
  4. CYCLOPHOSPHAMIDE [Suspect]
     Dosage: 400 UNK, UNK
     Route: 065
  5. DEXAMETHASONE [Suspect]
     Indication: PLASMA CELL MYELOMA
     Dosage: 40 MG, UNK
     Route: 048
     Dates: start: 20130315, end: 20130326
  6. DEXAMETHASONE [Suspect]
     Dosage: 20 UNK, UNK
     Route: 065
  7. SIMVASTATINE [Concomitant]
     Dosage: 40 MG, UNK
     Route: 048
     Dates: start: 20110117
  8. VALACICLOVIR [Concomitant]
     Indication: PROPHYLAXIS
     Dosage: 500 MG, UNK
     Route: 048
     Dates: start: 20130315
  9. COTRIMOXAZOL [Concomitant]
     Indication: PROPHYLAXIS
     Dosage: 480 MG, UNK
     Dates: start: 20130315

REACTIONS (2)
  - Delirium [Recovered/Resolved]
  - Ileus paralytic [Recovered/Resolved]
